FAERS Safety Report 6389749-1 (Version None)
Quarter: 2009Q4

REPORT INFORMATION
  Report Type: 
  Country: None (occurrence: None)
  Receive Date: 20091001
  Receipt Date: 20090916
  Transmission Date: 20100525
  Serious: Yes (Hospitalization)
  Sender: FDA-Public Use
  Company Number: 2009000610

PATIENT
  Age: 39 Year
  Sex: Female
  Weight: 78 kg

DRUGS (16)
  1. ERLOTINIB HYDROCHLORIDE [Suspect]
     Indication: NON-SMALL CELL LUNG CANCER
     Dosage: (150 MG, QD), ORAL
     Route: 048
     Dates: start: 20081209, end: 20090123
  2. CP-751,871 [Suspect]
     Indication: NON-SMALL CELL LUNG CANCER
     Dosage: (1558 MG, Q3W), INTRAVENOUS
     Route: 042
     Dates: start: 20081209, end: 20090102
  3. DOCETAXEL [Suspect]
     Indication: NON-SMALL CELL LUNG CANCER
     Dosage: (100 MG, EVERY 21 DAYS)
     Dates: start: 20090123
  4. BACTRIM DS [Concomitant]
  5. CLINDAMYCIN PHOSPHATE [Concomitant]
  6. ALBUTEROL [Concomitant]
  7. TYLENOL WITH CODEINE (PANADEINE CO) [Concomitant]
  8. PREDNISONE TAB [Concomitant]
  9. GEMCITABINE [Concomitant]
  10. ATOVAQUONE [Concomitant]
  11. BENZONATATE [Concomitant]
  12. METFORMIN HCL [Concomitant]
  13. RANITIDINE [Concomitant]
  14. ROBITUSSIN (GUAIFENESIN) [Concomitant]
  15. MIRALAX [Concomitant]
  16. ZANTAC 150 [Concomitant]

REACTIONS (7)
  - HAEMATOCRIT DECREASED [None]
  - HAEMOGLOBIN DECREASED [None]
  - HAEMOPTYSIS [None]
  - MALIGNANT NEOPLASM PROGRESSION [None]
  - NON-SMALL CELL LUNG CANCER [None]
  - THROMBOCYTOPENIA [None]
  - WHITE BLOOD CELL COUNT INCREASED [None]
